FAERS Safety Report 24065961 (Version 1)
Quarter: 2024Q3

REPORT INFORMATION
  Report Type: Spontaneous
  Country: US (occurrence: None)
  Receive Date: 20240708
  Receipt Date: 20240708
  Transmission Date: 20241016
  Serious: No
  Sender: Public
  Company Number: None

PATIENT
  Age: 40 Year
  Sex: Female

DRUGS (1)
  1. STELARA [Suspect]
     Active Substance: USTEKINUMAB
     Indication: Crohn^s disease
     Dosage: 90 MG 8WEEKS SUBCUTANEOUS
     Route: 058

REACTIONS (4)
  - Drug ineffective [None]
  - Candida infection [None]
  - Bronchitis [None]
  - Sinusitis [None]
